FAERS Safety Report 6552793-5 (Version None)
Quarter: 2010Q1

REPORT INFORMATION
  Report Type: 
  Country: None (occurrence: None)
  Receive Date: 20100121
  Receipt Date: 20100107
  Transmission Date: 20100710
  Serious: Yes (Hospitalization)
  Sender: FDA-Public Use
  Company Number: TRP_06400_2009

PATIENT
  Sex: Female
  Weight: 59.013 kg

DRUGS (4)
  1. RIBAVIRIN [Suspect]
     Indication: HEPATITIS C
     Dosage: (1000 MG, DAILY ORAL)
     Route: 048
     Dates: start: 20090724
  2. PEGASYS [Suspect]
     Indication: HEPATITIS C
     Dosage: (180 UG 1X/WEEK SUBCUTANEOUS) ; (135 UG 1X/WEEK, [0.4 ML] SUBCUTANEOUS)
     Route: 058
     Dates: start: 20090701, end: 20090901
  3. PEGASYS [Suspect]
     Indication: HEPATITIS C
     Dosage: (180 UG 1X/WEEK SUBCUTANEOUS) ; (135 UG 1X/WEEK, [0.4 ML] SUBCUTANEOUS)
     Route: 058
     Dates: start: 20090922
  4. BENZOYL PEROXIDE [Suspect]
     Indication: DRUG USE FOR UNKNOWN INDICATION

REACTIONS (36)
  - ACNE [None]
  - ANXIETY [None]
  - ARTHRALGIA [None]
  - ASTHENIA [None]
  - BACK PAIN [None]
  - CANDIDIASIS [None]
  - CHEST DISCOMFORT [None]
  - CYSTITIS [None]
  - DEHYDRATION [None]
  - DEPRESSION [None]
  - DYSGEUSIA [None]
  - FACIAL PAIN [None]
  - FEELING ABNORMAL [None]
  - GINGIVAL BLEEDING [None]
  - HAEMOGLOBIN DECREASED [None]
  - HEADACHE [None]
  - HYPOAESTHESIA [None]
  - INSOMNIA [None]
  - INTERVERTEBRAL DISC PROTRUSION [None]
  - MEMORY IMPAIRMENT [None]
  - MUSCLE STRAIN [None]
  - NAIL BED TENDERNESS [None]
  - OEDEMA PERIPHERAL [None]
  - ONYCHOMYCOSIS [None]
  - PAIN IN EXTREMITY [None]
  - PARAESTHESIA [None]
  - POST PROCEDURAL COMPLICATION [None]
  - RASH GENERALISED [None]
  - RED BLOOD CELL COUNT DECREASED [None]
  - SINUSITIS [None]
  - SWELLING FACE [None]
  - TINEA PEDIS [None]
  - TOOTH ABSCESS [None]
  - VISION BLURRED [None]
  - WEIGHT DECREASED [None]
  - WHITE BLOOD CELL COUNT DECREASED [None]
